FAERS Safety Report 6752830-9 (Version None)
Quarter: 2010Q2

REPORT INFORMATION
  Report Type: 
  Country: None (occurrence: None)
  Receive Date: 20100603
  Receipt Date: 20100524
  Transmission Date: 20101027
  Serious: Yes (Hospitalization)
  Sender: FDA-Public Use
  Company Number: US-BIOGENIDEC-2009BI004737

PATIENT
  Age: 52 Year
  Sex: Male
  Weight: 104 kg

DRUGS (1)
  1. AVONEX [Suspect]
     Indication: MULTIPLE SCLEROSIS
     Route: 030
     Dates: start: 20060508

REACTIONS (5)
  - DIABETES MELLITUS [None]
  - OEDEMA PERIPHERAL [None]
  - PNEUMONIA [None]
  - THROMBOTIC STROKE [None]
  - WEIGHT DECREASED [None]
